FAERS Safety Report 6058898-X (Version None)
Quarter: 2009Q1

REPORT INFORMATION
  Report Type: 
  Country: None (occurrence: None)
  Receive Date: 20090130
  Receipt Date: 20090120
  Transmission Date: 20090719
  Serious: Yes (Death, Hospitalization)
  Sender: FDA-Public Use
  Company Number: CA-BRISTOL-MYERS SQUIBB COMPANY-14468912

PATIENT
  Age: 66 Year
  Sex: Male
  Weight: 69 kg

DRUGS (8)
  1. BRIVANIB ALANINATE [Suspect]
     Indication: COLORECTAL CANCER METASTATIC
     Route: 048
     Dates: start: 20081219, end: 20090111
  2. CETUXIMAB [Suspect]
     Indication: COLORECTAL CANCER METASTATIC
     Route: 042
     Dates: start: 20081219, end: 20090107
  3. PLACEBO [Suspect]
     Indication: COLORECTAL CANCER METASTATIC
     Route: 048
     Dates: start: 20081219, end: 20090111
  4. MOTILIUM [Concomitant]
     Indication: DYSPEPSIA
     Dates: start: 20080501
  5. FRAGMIN [Concomitant]
     Indication: DEEP VEIN THROMBOSIS
     Dates: start: 20081008
  6. VOLTAREN [Concomitant]
     Indication: PAIN
     Dates: start: 20080501
  7. NEXIUM [Concomitant]
     Indication: PROPHYLAXIS
     Dates: start: 20081001
  8. DILAUDID [Concomitant]
     Indication: PAIN
     Dates: start: 20060101

REACTIONS (3)
  - FATIGUE [None]
  - MALIGNANT NEOPLASM PROGRESSION [None]
  - PSYCHOTIC DISORDER [None]
